FAERS Safety Report 4847224-7 (Version None)
Quarter: 2005Q4

REPORT INFORMATION
  Report Type: 
  Country: None (occurrence: None)
  Receive Date: 20051207
  Receipt Date: 20051129
  Transmission Date: 20060501
  Serious: Yes (Other)
  Sender: FDA-Public Use
  Company Number: US-GLAXOSMITHKLINE-A0583830A

PATIENT
  Age: 39 Year
  Sex: Male

DRUGS (3)
  1. PAXIL CR [Suspect]
     Dosage: 37.5MG SINGLE DOSE
     Route: 048
     Dates: start: 20051107
  2. PAROXETINE HCL [Suspect]
     Indication: ANXIETY
     Dosage: 80MG PER DAY
     Dates: start: 20050901
  3. NO CONCURRENT MEDICATION [Concomitant]

REACTIONS (2)
  - CONVULSION [None]
  - OVERDOSE [None]
